FAERS Safety Report 7771112-X (Version None)
Quarter: 2011Q3

REPORT INFORMATION
  Report Type: 
  Country: None (occurrence: None)
  Receive Date: 20110922
  Receipt Date: 20110909
  Transmission Date: 20111222
  Serious: Yes (Congenital Anomaly, Other)
  Sender: FDA-Public Use
  Company Number: GB-PFIZER INC-2011180898

PATIENT
  Age: 69 Year
  Sex: Male

DRUGS (5)
  1. RAMIPRIL [Suspect]
     Indication: PROPHYLAXIS
     Dosage: UNK
  2. ASPIRIN [Suspect]
     Indication: TYPE 2 DIABETES MELLITUS
     Dosage: UNK
  3. SIMVASTATIN [Suspect]
     Indication: HYPERCHOLESTEROLAEMIA
     Dosage: UNK
     Route: 065
  4. ASPIRIN [Suspect]
     Indication: PROPHYLAXIS
  5. METFORMIN HCL [Suspect]
     Indication: TYPE 2 DIABETES MELLITUS
     Dosage: UNK
     Route: 065

REACTIONS (1)
  - NAEVUS FLAMMEUS [None]
